FAERS Safety Report 5012158-4 (Version None)
Quarter: 2006Q2

REPORT INFORMATION
  Report Type: 
  Country: None (occurrence: None)
  Receive Date: 20060524
  Receipt Date: 20060519
  Transmission Date: 20061013
  Serious: Yes (Other)
  Sender: FDA-Public Use
  Company Number: 007530

PATIENT
  Age: 64 Year
  Sex: Female

DRUGS (3)
  1. MEDROXYPROGESTERONE ACETATE [Suspect]
     Dosage: ORAL
     Route: 048
     Dates: start: 19960101, end: 19990101
  2. PREMARIN [Suspect]
     Dosage: ORAL
     Route: 048
     Dates: start: 19960101, end: 19990101
  3. CYCRIN [Suspect]
     Dosage: ORAL
     Route: 048
     Dates: start: 19960101, end: 19990101

REACTIONS (2)
  - BREAST CANCER FEMALE [None]
  - BREAST CANCER IN SITU [None]
